FAERS Safety Report 23862831 (Version 1)
Quarter: 2024Q2

REPORT INFORMATION
  Report Type: Spontaneous
  Country: US (occurrence: None)
  Receive Date: 20240515
  Receipt Date: 20240515
  Transmission Date: 20240716
  Serious: Yes (Death)
  Sender: FDA-Public Use
  Company Number: None

PATIENT
  Age: 71 Year
  Sex: Female
  Weight: 52.65 kg

DRUGS (2)
  1. DABRAFENIB [Suspect]
     Active Substance: DABRAFENIB
  2. TRAMETINIB [Suspect]
     Active Substance: TRAMETINIB

REACTIONS (3)
  - Cardio-respiratory arrest [None]
  - Myocarditis infectious [None]
  - Cellulitis [None]

NARRATIVE: CASE EVENT DATE: 20240325
